FAERS Safety Report 16076956 (Version 1)
Quarter: 2019Q1

REPORT INFORMATION
  Report Type: Spontaneous
  Country: GB (occurrence: GB)
  Receive Date: 20190315
  Receipt Date: 20190315
  Transmission Date: 20190418
  Serious: Yes (Hospitalization)
  Sender: FDA-Public Use
  Company Number: GB-TEVA-2019-GB-1023573

PATIENT
  Age: 83 Year
  Sex: Female

DRUGS (6)
  1. ROSUVASTATIN. [Concomitant]
     Active Substance: ROSUVASTATIN
  2. LEVETIRACETAM. [Suspect]
     Active Substance: LEVETIRACETAM
     Indication: PETIT MAL EPILEPSY
     Dosage: 500 MILLIGRAM DAILY;
     Route: 048
     Dates: start: 20181227, end: 20190202
  3. RANITIDINE. [Concomitant]
     Active Substance: RANITIDINE
  4. PARACETAMOL [Concomitant]
     Active Substance: ACETAMINOPHEN
  5. ACETYLSALICYLIC ACID [Concomitant]
     Active Substance: ASPIRIN
  6. DOCUSATE [Concomitant]
     Active Substance: DOCUSATE

REACTIONS (2)
  - Confusional state [Unknown]
  - Pancytopenia [Unknown]

NARRATIVE: CASE EVENT DATE: 20190214
